FAERS Safety Report 8549566-0 (Version None)
Quarter: 2012Q3

REPORT INFORMATION
  Report Type: 
  Country: None (occurrence: None)
  Receive Date: 20120730
  Receipt Date: 20120726
  Transmission Date: 20120928
  Serious: Yes (Hospitalization)
  Sender: FDA-Public Use
  Company Number: JP-PFIZER INC-2012172680

PATIENT
  Age: 31 Year
  Sex: Male

DRUGS (1)
  1. ALPRAZOLAM [Suspect]
     Dosage: UNK

REACTIONS (2)
  - LIGAMENT INJURY [None]
  - EMOTIONAL DISORDER [None]
